FAERS Safety Report 5793483-6 (Version None)
Quarter: 2008Q2

REPORT INFORMATION
  Report Type: 
  Country: None (occurrence: None)
  Receive Date: 20080627
  Receipt Date: 20080623
  Transmission Date: 20081010
  Serious: Yes (Other)
  Sender: FDA-Public Use
  Company Number: US-JNJFOC-20080603387

PATIENT
  Sex: Female

DRUGS (1)
  1. MONONESSA [Suspect]
     Indication: CONTRACEPTION
     Route: 048

REACTIONS (1)
  - VISUAL ACUITY REDUCED [None]
